FAERS Safety Report 9311599 (Version 1)
Quarter: 2013Q2

REPORT INFORMATION
  Report Type: Spontaneous
  Country: BR (occurrence: BR)
  Receive Date: 20130528
  Receipt Date: 20130528
  Transmission Date: 20140414
  Serious: Yes (Hospitalization, Other)
  Sender: FDA-Public Use
  Company Number: BR-SANOFI-AVENTIS-2013SA052092

PATIENT
  Age: 73 Year
  Sex: Female
  Weight: 74 kg

DRUGS (2)
  1. ARAVA [Suspect]
     Route: 048
     Dates: start: 201207
  2. HUMIRA [Suspect]
     Indication: RHEUMATOID ARTHRITIS
     Route: 058
     Dates: start: 2010

REACTIONS (9)
  - Thrombosis [Recovered/Resolved]
  - Local swelling [Recovered/Resolved]
  - Sensation of heaviness [Recovered/Resolved]
  - Dysstasia [Recovered/Resolved]
  - Pain in extremity [Unknown]
  - Burning sensation [Unknown]
  - Feeling hot [Unknown]
  - Hypoaesthesia [Unknown]
  - Feeling hot [Recovered/Resolved]
